FAERS Safety Report 18180844 (Version 2)
Quarter: 2020Q4

REPORT INFORMATION
  Report Type: Report from Study
  Country: FR (occurrence: FR)
  Receive Date: 20200821
  Receipt Date: 20201009
  Transmission Date: 20210113
  Serious: Yes (Death, Life-Threatening, Hospitalization)
  Sender: FDA-Public Use
  Company Number: FR-BAYER-2020-174068

PATIENT
  Age: 78 Year
  Sex: Female
  Weight: 62 kg

DRUGS (4)
  1. RED BLOOD CELLS [Concomitant]
     Active Substance: HUMAN RED BLOOD CELL
     Indication: TRANSFUSION
     Dosage: 858
     Route: 065
     Dates: start: 20200131
  2. PLATELETS [Concomitant]
     Active Substance: HUMAN PLATELET, ALLOGENIC
     Indication: TRANSFUSION
     Dosage: 193
     Route: 065
     Dates: start: 20200131
  3. HEPARIN [Concomitant]
     Active Substance: HEPARIN SODIUM
     Indication: ANTICOAGULANT THERAPY
     Dosage: 15 KILO-INTERNATIONAL UNIT TOTAL DURING SURGERY
     Route: 065
     Dates: start: 20200131, end: 20200131
  4. TRASYLOL [Suspect]
     Active Substance: APROTININ
     Indication: AORTIC VALVE REPLACEMENT
     Dosage: 288 MILLILITRE EVERY 1 DAY(S) LOADING DOSE 1 MILLION KIU PUMP PRIMING DOSE 1 MILLION KIU TOTAL CONTI
     Route: 065
     Dates: start: 20200131, end: 20200131

REACTIONS (3)
  - Off label use [None]
  - Product use in unapproved indication [Unknown]
  - Renal impairment [Recovered/Resolved]

NARRATIVE: CASE EVENT DATE: 20200131
